FAERS Safety Report 5013999-X (Version None)
Quarter: 2006Q2

REPORT INFORMATION
  Report Type: 
  Country: None (occurrence: None)
  Receive Date: 20060526
  Receipt Date: 20060526
  Transmission Date: 20061013
  Serious: No
  Sender: FDA-Public Use
  Company Number: None

PATIENT
  Age: 51 Year
  Sex: Female
  Weight: 74.8435 kg

DRUGS (2)
  1. LYRICA [Suspect]
     Indication: NEURALGIA
     Dosage: 75MG  BID  PO
     Route: 048
     Dates: start: 20051109, end: 20060109
  2. LYRICA [Suspect]
     Dosage: 150MG   BID  PO
     Route: 048
     Dates: start: 20060110, end: 20060303

REACTIONS (4)
  - DECUBITUS ULCER [None]
  - FLUID RETENTION [None]
  - OEDEMA PERIPHERAL [None]
  - WEIGHT INCREASED [None]
